FAERS Safety Report 6108626-4 (Version None)
Quarter: 2009Q1

REPORT INFORMATION
  Report Type: 
  Country: None (occurrence: None)
  Receive Date: 20090305
  Receipt Date: 20090223
  Transmission Date: 20090719
  Serious: Yes (Disabling)
  Sender: FDA-Public Use
  Company Number: OSCN-NO-0902S-0112

PATIENT
  Age: 74 Year
  Sex: Male

DRUGS (11)
  1. OMNISCAN [Suspect]
     Indication: DRUG USE FOR UNKNOWN INDICATION
     Dosage: 40 ML, SINGLE DOSE, I.V.
     Route: 042
     Dates: start: 20040318, end: 20040318
  2. PULMICORT [Concomitant]
  3. DUOVENT (BERODUAL) [Concomitant]
  4. IMDUR [Concomitant]
  5. ACETYLSALICYLIC ACID (MAGNYL) [Concomitant]
  6. ZOCOR [Concomitant]
  7. PLENDIL [Concomitant]
  8. NICORANDIL (ANGICOR) [Concomitant]
  9. GABAPENTIN [Concomitant]
  10. CALCIUM ACETATE (PHOS-EX) [Concomitant]
  11. LACTULOSE [Concomitant]

REACTIONS (1)
  - NEPHROGENIC SYSTEMIC FIBROSIS [None]
